FAERS Safety Report 11059193 (Version 1)
Quarter: 2015Q2

REPORT INFORMATION
  Report Type: Spontaneous
  Country: US (occurrence: None)
  Receive Date: 20150420
  Receipt Date: 20150420
  Transmission Date: 20150821
  Serious: No
  Sender: FDA-Public Use
  Company Number: AEGR001099

PATIENT
  Age: 60 Year
  Sex: Female
  Weight: 74.4 kg

DRUGS (18)
  1. ASPIRIN. [Concomitant]
     Active Substance: ASPIRIN
  2. PLAVIX [Concomitant]
     Active Substance: CLOPIDOGREL BISULFATE
  3. TOPROL XL [Concomitant]
     Active Substance: METOPROLOL SUCCINATE
  4. GABAPENTIN. [Concomitant]
     Active Substance: GABAPENTIN
  5. ZETIA [Concomitant]
     Active Substance: EZETIMIBE
  6. CYMBALTA [Concomitant]
     Active Substance: DULOXETINE HYDROCHLORIDE
  7. JUXTAPID [Suspect]
     Active Substance: LOMITAPIDE MESYLATE
     Indication: PRODUCT USED FOR UNKNOWN INDICATION
     Route: 048
     Dates: start: 20150105, end: 2015
  8. RANEXA [Concomitant]
     Active Substance: RANOLAZINE
  9. NITROGLYCERIN (GLYCERYL TRINITRATE) [Concomitant]
     Active Substance: NITROGLYCERIN
  10. PANTOPRAZOLE SODIUM [Concomitant]
  11. AMLODIPINE BESYLATE. [Concomitant]
     Active Substance: AMLODIPINE BESYLATE
  12. SUPER CLEANSE(ALTHAEA OFFIANALIS ROOT, BERBERIA VULGARIS [Suspect]
     Active Substance: DIETARY SUPPLEMENT
  13. ALLEGRA [Concomitant]
     Active Substance: FEXOFENADINE HYDROCHLORIDE
  14. PATANOL [Concomitant]
     Active Substance: OLOPATADINE HYDROCHLORIDE
  15. RESTORIL [Concomitant]
     Active Substance: TEMAZEPAM
  16. JUXTAPID [Suspect]
     Active Substance: LOMITAPIDE MESYLATE
     Indication: HYPERCHOLESTEROLAEMIA
     Route: 048
     Dates: start: 20150105, end: 2015
  17. VITAMIN D3 [Concomitant]
     Active Substance: CHOLECALCIFEROL
  18. CO-Q-10 (UBIDECARENONE) [Concomitant]

REACTIONS (2)
  - Abdominal pain [None]
  - Diarrhoea [None]

NARRATIVE: CASE EVENT DATE: 20150108
